FAERS Safety Report 5615204-X (Version None)
Quarter: 2008Q1

REPORT INFORMATION
  Report Type: 
  Country: None (occurrence: None)
  Receive Date: 20080206
  Receipt Date: 20080204
  Transmission Date: 20080703
  Serious: Yes (Other)
  Sender: FDA-Public Use
  Company Number: NL-WYE-G00998708

PATIENT
  Sex: Female
  Weight: 65 kg

DRUGS (6)
  1. EFFEXOR XR [Suspect]
     Indication: DEPRESSION SUICIDAL
     Route: 048
     Dates: start: 20040101, end: 20060101
  2. EFFEXOR XR [Suspect]
     Route: 048
     Dates: start: 20060101, end: 20070201
  3. EFFEXOR XR [Suspect]
     Route: 048
     Dates: start: 20070201, end: 20070301
  4. EFFEXOR XR [Suspect]
     Route: 048
     Dates: start: 20070301, end: 20071001
  5. EFFEXOR XR [Suspect]
     Route: 048
     Dates: start: 20071001, end: 20071130
  6. EFFEXOR XR [Suspect]
     Route: 048
     Dates: start: 20071227

REACTIONS (5)
  - DEPRESSION [None]
  - DRUG WITHDRAWAL SYNDROME [None]
  - RESTLESSNESS [None]
  - SUICIDAL IDEATION [None]
  - VOMITING [None]
